FAERS Safety Report 4656567-1 (Version None)
Quarter: 2005Q2

REPORT INFORMATION
  Report Type: 
  Country: None (occurrence: None)
  Receive Date: 20050506
  Receipt Date: 20050426
  Transmission Date: 20051028
  Serious: Yes (Life-Threatening, Other)
  Sender: FDA-Public Use
  Company Number: 430009M05FRA

PATIENT
  Age: 50 Year
  Sex: Male

DRUGS (1)
  1. NOVANTRONE [Suspect]
     Indication: MULTIPLE SCLEROSIS
     Dosage: SEE IMAGE, INTRAVENOUS
     Route: 042
     Dates: start: 20011020, end: 20020401

REACTIONS (1)
  - ACUTE PROMYELOCYTIC LEUKAEMIA [None]
